FAERS Safety Report 11179731 (Version 6)
Quarter: 2015Q4

REPORT INFORMATION
  Report Type: Report from Study
  Country: CA (occurrence: CA)
  Receive Date: 20150611
  Receipt Date: 20151208
  Transmission Date: 20160304
  Serious: Yes (Other)
  Sender: FDA-Public Use
  Company Number: PHHY2014CA164398

PATIENT
  Age: 47 Year
  Sex: Female

DRUGS (3)
  1. GILENYA [Suspect]
     Active Substance: FINGOLIMOD HYDROCHLORIDE
     Indication: RELAPSING-REMITTING MULTIPLE SCLEROSIS
     Dosage: 0.5 MG, QD
     Route: 048
     Dates: start: 20140911, end: 20150522
  2. VITAMIN D [Concomitant]
     Active Substance: CHOLECALCIFEROL
     Indication: PRODUCT USED FOR UNKNOWN INDICATION
     Dosage: UNK
     Route: 065
  3. ZOPLICONE [Concomitant]
     Active Substance: ZOPICLONE
     Indication: PRODUCT USED FOR UNKNOWN INDICATION
     Dosage: UNK
     Route: 065

REACTIONS (17)
  - Fatigue [Recovering/Resolving]
  - Granuloma annulare [Unknown]
  - Platelet count decreased [Unknown]
  - Back pain [Recovered/Resolved]
  - Alopecia [Recovering/Resolving]
  - Blood alkaline phosphatase decreased [Unknown]
  - Rash [Recovering/Resolving]
  - Coordination abnormal [Recovered/Resolved]
  - Visual acuity reduced [Recovered/Resolved]
  - Diffuse alopecia [Unknown]
  - Blood cholesterol increased [Unknown]
  - Headache [Recovered/Resolved]
  - Lymphocyte count decreased [Unknown]
  - Bronchitis [Recovered/Resolved]
  - Muscle spasticity [Recovered/Resolved]
  - Nausea [Recovered/Resolved]
  - Hypoaesthesia [Recovering/Resolving]

NARRATIVE: CASE EVENT DATE: 20140911
